FAERS Safety Report 20205440 (Version 2)
Quarter: 2022Q2

REPORT INFORMATION
  Report Type: Report from Study
  Country: US (occurrence: None)
  Receive Date: 20211220
  Receipt Date: 20220517
  Transmission Date: 20220721
  Serious: Yes (Hospitalization)
  Sender: FDA-Public Use
  Company Number: US-ROCHE-2908084

PATIENT
  Age: 74 Year
  Sex: Female
  Weight: 153 kg

DRUGS (21)
  1. ATEZOLIZUMAB [Suspect]
     Active Substance: ATEZOLIZUMAB
     Indication: Ovarian cancer
     Dosage: CYCLE: 28 DAYS?MOST RECENT DOSE OF ATEZOLIZUMAB PRIOR TO SERIOUS ADVERSE EVENT ONSET ON 28/JUN/2021
     Route: 041
     Dates: start: 20210614
  2. ATEZOLIZUMAB [Suspect]
     Active Substance: ATEZOLIZUMAB
     Dosage: ON 28/JUN/2021, SHE RECEIVED THE MOST RECENT DOSE OF ATEZOLIZUMAB PRIOR TO SERIOUS ADVERSE EVENT ONS
     Route: 041
     Dates: start: 20210628, end: 20210628
  3. BEVACIZUMAB [Suspect]
     Active Substance: BEVACIZUMAB
     Indication: Ovarian cancer
     Dosage: CYCLE: 28 DAYS?MOST RECENT DOSE OF BEVACIZUMAB PRIOR TO SERIOUS ADVERSE EVENT ONSET ON 28/JUN/2021
     Route: 042
     Dates: start: 20210614
  4. BEVACIZUMAB [Suspect]
     Active Substance: BEVACIZUMAB
     Dosage: 28/JUN/2021 WAS LAST ADMINISTERED DATE PRIOR TO AE ,10 MG/KG  OVER 90 MINUTES ON DAYS 1 AND 15
     Route: 042
     Dates: start: 20210628, end: 20210628
  5. BEVACIZUMAB [Suspect]
     Active Substance: BEVACIZUMAB
     Dosage: ON 28/JUN/2021, SHE RECEIVED THE MOST RECENT DOSE OF BEVACIZUMAB PRIOR TO SERIOUS ADVERSE EVENT ONSE
     Route: 042
     Dates: start: 20210628, end: 20210628
  6. DOXORUBICIN HYDROCHLORIDE [Suspect]
     Active Substance: DOXORUBICIN HYDROCHLORIDE
     Indication: Ovarian cancer
     Dosage: CYCLE: 28 DAYS?MOST RECENT DOSE OF PEGYLATED LIPOSOMAL DOXORUBICIN PRIOR TO SERIOUS ADVERSE EVENT ON
     Route: 042
     Dates: start: 20210614
  7. DOXORUBICIN HYDROCHLORIDE [Suspect]
     Active Substance: DOXORUBICIN HYDROCHLORIDE
     Dosage: ON 02/AUG/2021, SHE RECEIVED THE MOST RECENT DOSE OF LIPOSOMAL DOXORUBICIN PRIOR TO SERIOUS ADVERSE
     Route: 042
     Dates: start: 20210614
  8. ASPIRIN [Concomitant]
     Active Substance: ASPIRIN
  9. LIPITOR [Concomitant]
     Active Substance: ATORVASTATIN CALCIUM
  10. FIORICET [Concomitant]
     Active Substance: ACETAMINOPHEN\BUTALBITAL\CAFFEINE
  11. CYANOCOBALAMIN [Concomitant]
     Active Substance: CYANOCOBALAMIN
  12. DOK [Concomitant]
     Active Substance: DOCUSATE SODIUM
  13. KEPPRA [Concomitant]
     Active Substance: LEVETIRACETAM
  14. MAGNESIUM HYDROXIDE [Concomitant]
     Active Substance: MAGNESIUM HYDROXIDE
  15. MELATONIN [Concomitant]
     Active Substance: MELATONIN
  16. TAPAZOLE [Concomitant]
     Active Substance: METHIMAZOLE
  17. DELTASONE [Concomitant]
     Active Substance: PREDNISONE
  18. INDERAL [Concomitant]
     Active Substance: PROPRANOLOL HYDROCHLORIDE
  19. CARMOL [UREA] [Concomitant]
  20. LIDOCAINE\PRILOCAINE [Concomitant]
     Active Substance: LIDOCAINE\PRILOCAINE
  21. VALIUM [Concomitant]
     Active Substance: DIAZEPAM

REACTIONS (3)
  - Cerebrovascular accident [Recovered/Resolved]
  - Transient ischaemic attack [Recovered/Resolved]
  - Seizure [Recovered/Resolved]

NARRATIVE: CASE EVENT DATE: 20210712
